FAERS Safety Report 8162446-8 (Version None)
Quarter: 2012Q1

REPORT INFORMATION
  Report Type: 
  Country: None (occurrence: None)
  Receive Date: 20120221
  Receipt Date: 20120207
  Transmission Date: 20120608
  Serious: Yes (Other)
  Sender: FDA-Public Use
  Company Number: 2011MA001487

PATIENT
  Sex: Male
  Weight: 79.3795 kg

DRUGS (31)
  1. ASPIRIN [Concomitant]
  2. METOCLOPRAMIDE [Suspect]
     Indication: GASTROOESOPHAGEAL REFLUX DISEASE
     Dosage: 10 MG;BID;PO
     Route: 048
     Dates: start: 20040203, end: 20090929
  3. METOCLOPRAMIDE [Suspect]
     Indication: DIABETIC GASTROPARESIS
     Dosage: 10 MG;BID;PO
     Route: 048
     Dates: start: 20040203, end: 20090929
  4. METFORMIN HCL [Concomitant]
  5. METHOCARBAMOL [Concomitant]
  6. ACTOS [Concomitant]
  7. PLAVIX [Concomitant]
  8. IBUPROFEN TABLETS [Concomitant]
  9. CYCLOBENZAPRINE [Concomitant]
  10. METHADONE HCL [Concomitant]
  11. HYDROCODONE BITARTRATE [Concomitant]
  12. APAP TAB [Concomitant]
  13. CELEBREX [Concomitant]
  14. LISINOPRIL [Concomitant]
  15. CLARINEX [Concomitant]
  16. FLOVENT [Concomitant]
  17. ACIPHEX [Concomitant]
  18. NAPROXEN [Concomitant]
  19. SKELAXIN [Concomitant]
  20. PREVACID [Concomitant]
  21. OMEPRAZOLE [Concomitant]
  22. PRAVACHOL [Concomitant]
  23. NITROGLYCERIN [Concomitant]
  24. ANDRODERM [Concomitant]
  25. NOVOLIN INSULIN [Concomitant]
  26. PAROXETINE [Concomitant]
  27. TEMAZEPAM [Concomitant]
  28. LIPITOR [Concomitant]
  29. TRAMADOL HCL [Concomitant]
  30. FLOMAX [Concomitant]
  31. PAXIL [Concomitant]

REACTIONS (16)
  - AKATHISIA [None]
  - DYSKINESIA [None]
  - PROTRUSION TONGUE [None]
  - THYROID MASS [None]
  - UNEVALUABLE EVENT [None]
  - TREMOR [None]
  - SPEECH DISORDER [None]
  - GAIT DISTURBANCE [None]
  - TARDIVE DYSKINESIA [None]
  - EXTRAPYRAMIDAL DISORDER [None]
  - EMOTIONAL DISORDER [None]
  - INCORRECT DRUG ADMINISTRATION DURATION [None]
  - ACTIVITIES OF DAILY LIVING IMPAIRED [None]
  - DYSTONIA [None]
  - MUSCULAR WEAKNESS [None]
  - NECK PAIN [None]
